FAERS Safety Report 5293411-6 (Version None)
Quarter: 2007Q2

REPORT INFORMATION
  Report Type: 
  Country: None (occurrence: None)
  Receive Date: 20070411
  Receipt Date: 20070402
  Transmission Date: 20071010
  Serious: Yes (Hospitalization)
  Sender: FDA-Public Use
  Company Number: DE-ROCHE-490761

PATIENT
  Age: 46 Year
  Sex: Female
  Weight: 70 kg

DRUGS (4)
  1. PEG-INTERFERON ALFA 2A (RO 25-8310) [Suspect]
     Route: 058
     Dates: start: 20061027, end: 20070330
  2. RIBAVIRIN [Suspect]
     Route: 048
     Dates: start: 20061027, end: 20070330
  3. PK-MERZ [Suspect]
     Route: 048
     Dates: start: 20061027, end: 20070330
  4. L-TYROSIN [Concomitant]

REACTIONS (1)
  - GUILLAIN-BARRE SYNDROME [None]
